FAERS Safety Report 4546208-6 (Version None)
Quarter: 2005Q1

REPORT INFORMATION
  Report Type: 
  Country: None (occurrence: None)
  Receive Date: 20050103
  Receipt Date: 20041220
  Transmission Date: 20050727
  Serious: Yes (Hospitalization, Other)
  Sender: FDA-Public Use
  Company Number: DPC-2004-00094

PATIENT
  Age: 40 Year
  Sex: Female

DRUGS (1)
  1. EVOXAC [Suspect]
     Dosage: 30 MG, TID, PER ORAL
     Route: 048
     Dates: end: 20041219

REACTIONS (3)
  - CHOLECYSTITIS ACUTE [None]
  - CHOLELITHIASIS [None]
  - HYPOTENSION [None]
